FAERS Safety Report 8973673 (Version 1)
Quarter: 2012Q4

REPORT INFORMATION
  Report Type: 
  Country: US (occurrence: US)
  Receive Date: 20121218
  Receipt Date: 20121218
  Transmission Date: 20130627
  Serious: No
  Sender: FDA-Public Use
  Company Number: US-BRISTOL-MYERS SQUIBB COMPANY-16916710

PATIENT
  Age: 42 Year
  Sex: Male

DRUGS (3)
  1. ABILIFY [Suspect]
     Indication: DEPRESSION
     Dosage: Abilify started with 4mg,about 18 months ago,Stopped for 1-2 months
     Route: 048
  2. PROZAC [Suspect]
  3. WELLBUTRIN [Suspect]

REACTIONS (2)
  - Dental caries [Unknown]
  - Treatment noncompliance [Unknown]
